FAERS Safety Report 21906044 (Version 1)
Quarter: 2023Q1

REPORT INFORMATION
  Report Type: Spontaneous
  Country: CN (occurrence: CN)
  Receive Date: 20230124
  Receipt Date: 20230124
  Transmission Date: 20230418
  Serious: Yes (Hospitalization, Other)
  Sender: FDA-Public Use
  Company Number: None

PATIENT
  Age: 56 Year
  Sex: Female
  Weight: 54 kg

DRUGS (7)
  1. CYCLOPHOSPHAMIDE [Suspect]
     Active Substance: CYCLOPHOSPHAMIDE
     Indication: Breast cancer female
     Dosage: 0.8 G, QD, DILUTED WITH 100 ML OF 0.9 % SODIUM CHLORIDE, ADJUVANT CHEMOTHERAPY
     Route: 041
     Dates: start: 20221221, end: 20221221
  2. CYCLOPHOSPHAMIDE [Suspect]
     Active Substance: CYCLOPHOSPHAMIDE
     Indication: Radiochemotherapy
  3. SODIUM CHLORIDE [Suspect]
     Active Substance: SODIUM CHLORIDE
     Indication: Medication dilution
     Dosage: 100 ML, QD, USED TO DILUTE 0.8 G CYCLOPHOSPHAMIDE, ADJUVANT CHEMOTHERAPY
     Route: 041
     Dates: start: 20221221, end: 20221221
  4. MITOXANTRONE HYDROCHLORIDE [Suspect]
     Active Substance: MITOXANTRONE HYDROCHLORIDE
     Indication: Breast cancer female
     Dosage: 15 MG, QD, COMBINATION DRUG (WITH SODIUM CHLORIDE), ADJUVANT CHEMOTHERAPY
     Route: 041
     Dates: start: 20221221, end: 20221221
  5. MITOXANTRONE HYDROCHLORIDE [Suspect]
     Active Substance: MITOXANTRONE HYDROCHLORIDE
     Indication: Radiochemotherapy
  6. SODIUM CHLORIDE [Suspect]
     Active Substance: SODIUM CHLORIDE
     Indication: Breast cancer female
     Dosage: 15 MG, QD, COMBINATION DRUG (WITH MITOXANTRONE HYDROCHLORIDE), ADJUVANT CHEMOTHERAPY
     Route: 041
     Dates: start: 20221221, end: 20221221
  7. SODIUM CHLORIDE [Suspect]
     Active Substance: SODIUM CHLORIDE
     Indication: Radiochemotherapy

REACTIONS (1)
  - Myelosuppression [Recovering/Resolving]

NARRATIVE: CASE EVENT DATE: 20230110
